FAERS Safety Report 22250811 (Version 1)
Quarter: 2023Q2

REPORT INFORMATION
  Report Type: Spontaneous
  Country: AU (occurrence: None)
  Receive Date: 20230425
  Receipt Date: 20230425
  Transmission Date: 20230722
  Serious: Yes (Other)
  Sender: FDA-Public Use
  Company Number: 2023A089015

PATIENT
  Age: 18 Year
  Sex: Male

DRUGS (5)
  1. SYMBICORT [Suspect]
     Active Substance: BUDESONIDE\FORMOTEROL FUMARATE DIHYDRATE
     Route: 055
  2. ALBUTEROL [Suspect]
     Active Substance: ALBUTEROL
  3. DEXAMETHASONE\FRAMYCETIN SULFATE\GRAMICIDIN [Suspect]
     Active Substance: DEXAMETHASONE\FRAMYCETIN SULFATE\GRAMICIDIN
  4. ACETAMINOPHEN [Suspect]
     Active Substance: ACETAMINOPHEN
  5. SULFASALAZINE [Suspect]
     Active Substance: SULFASALAZINE

REACTIONS (16)
  - Joint dislocation [Unknown]
  - Axial spondyloarthritis [Unknown]
  - Back pain [Unknown]
  - Blood creatine phosphokinase increased [Unknown]
  - C-reactive protein abnormal [Unknown]
  - Dry eye [Unknown]
  - Dry mouth [Unknown]
  - Epistaxis [Unknown]
  - HLA-B*27 positive [Unknown]
  - Inflammatory pain [Unknown]
  - Migraine with aura [Unknown]
  - Pneumonia [Unknown]
  - Rash [Unknown]
  - Sinusitis [Unknown]
  - Sjogren^s syndrome [Unknown]
  - Varicella [Unknown]
